FAERS Safety Report 8036313-4 (Version None)
Quarter: 2012Q1

REPORT INFORMATION
  Report Type: 
  Country: None (occurrence: None)
  Receive Date: 20120111
  Receipt Date: 20110914
  Transmission Date: 20120608
  Serious: No
  Sender: FDA-Public Use
  Company Number: US-GLAXOSMITHKLINE-A0944615A

PATIENT
  Age: 74 Year
  Sex: Male

DRUGS (4)
  1. ASPIRIN [Concomitant]
  2. BLOOD PRESSURE MEDICATION [Concomitant]
     Indication: HYPERTENSION
  3. CHOLESTEROL REDUCING AGENT [Concomitant]
     Indication: BLOOD CHOLESTEROL INCREASED
  4. JALYN [Suspect]
     Indication: BENIGN PROSTATIC HYPERPLASIA
     Dosage: 1CAP ALTERNATE DAYS
     Route: 048
     Dates: start: 20110714

REACTIONS (3)
  - SEMEN VOLUME DECREASED [None]
  - NIPPLE PAIN [None]
  - ERECTILE DYSFUNCTION [None]
